FAERS Safety Report 19032519 (Version 2)
Quarter: 2021Q1

REPORT INFORMATION
  Report Type: Spontaneous
  Country: UA (occurrence: UA)
  Receive Date: 20210319
  Receipt Date: 20210330
  Transmission Date: 20210420
  Serious: Yes (Death)
  Sender: FDA-Public Use
  Company Number: UA-CELGENEUS-UKR-20210304221

PATIENT
  Age: 58 Year
  Sex: Male
  Weight: 50.1 kg

DRUGS (14)
  1. DEXALGIN [Concomitant]
     Indication: PRODUCT USED FOR UNKNOWN INDICATION
     Route: 065
     Dates: start: 202012, end: 20210310
  2. ESSENTIALE N [Concomitant]
     Active Substance: PHOSPHOLIPID
     Indication: PRODUCT USED FOR UNKNOWN INDICATION
     Route: 065
     Dates: start: 20210216, end: 20210310
  3. SERPLULIMAB. [Suspect]
     Active Substance: SERPLULIMAB
     Indication: LUNG NEOPLASM MALIGNANT
     Dosage: 222.5 MILLIGRAM
     Route: 041
     Dates: start: 20210211, end: 20210304
  4. HEPTRAL [Concomitant]
     Active Substance: ADEMETIONINE
     Indication: PRODUCT USED FOR UNKNOWN INDICATION
     Route: 065
     Dates: start: 20210216, end: 20210310
  5. CORAXAN [Concomitant]
     Indication: PRODUCT USED FOR UNKNOWN INDICATION
     Route: 065
     Dates: start: 20210305, end: 20210310
  6. METHYLURACILUM [Concomitant]
     Indication: PRODUCT USED FOR UNKNOWN INDICATION
     Route: 065
     Dates: start: 20210305, end: 20210308
  7. CARBOPLATIN. [Suspect]
     Active Substance: CARBOPLATIN
     Dosage: 740 MILLIGRAM
     Route: 041
     Dates: start: 20210304, end: 20210304
  8. EMETON [Concomitant]
     Indication: PRODUCT USED FOR UNKNOWN INDICATION
     Route: 065
     Dates: start: 20210211, end: 20210304
  9. HARTMAN SOLUTION [Concomitant]
     Indication: PRODUCT USED FOR UNKNOWN INDICATION
     Route: 065
     Dates: start: 20210211, end: 20210304
  10. ABRAXANE [Suspect]
     Active Substance: PACLITAXEL
     Indication: LUNG NEOPLASM MALIGNANT
     Dosage: 160 MILLIGRAM
     Route: 041
     Dates: start: 20210211, end: 20210304
  11. CARBOPLATIN. [Suspect]
     Active Substance: CARBOPLATIN
     Indication: LUNG NEOPLASM MALIGNANT
     Dosage: 729 MILLIGRAM
     Route: 041
     Dates: start: 20210211, end: 20210211
  12. OMEPRAZOLE. [Concomitant]
     Active Substance: OMEPRAZOLE
     Indication: PRODUCT USED FOR UNKNOWN INDICATION
     Route: 065
     Dates: start: 20210211, end: 20210304
  13. DEXAMETHASONUM [Concomitant]
     Active Substance: DEXAMETHASONE
     Indication: PRODUCT USED FOR UNKNOWN INDICATION
     Route: 065
     Dates: start: 20210211, end: 20210304
  14. ETAMSYLATE [Concomitant]
     Active Substance: ETHAMSYLATE
     Indication: PRODUCT USED FOR UNKNOWN INDICATION
     Route: 065
     Dates: start: 20210309, end: 20210310

REACTIONS (1)
  - Cardiac failure acute [Fatal]

NARRATIVE: CASE EVENT DATE: 20210310
